FAERS Safety Report 5240603-8 (Version None)
Quarter: 2007Q1

REPORT INFORMATION
  Report Type: 
  Country: None (occurrence: None)
  Receive Date: 20061208
  Receipt Date: 20051006
  Transmission Date: 20070707
  Serious: Yes (Other)
  Sender: FDA-Public Use
  Company Number: 2005UW14989

PATIENT
  Age: 53 Year
  Sex: Female
  Weight: 83.914 kg

DRUGS (2)
  1. CRESTOR [Suspect]
     Indication: BLOOD CHOLESTEROL INCREASED
  2. VITAMINS [Concomitant]

REACTIONS (2)
  - ALOPECIA [None]
  - RASH [None]
